FAERS Safety Report 25836131 (Version 1)
Quarter: 2025Q3

REPORT INFORMATION
  Report Type: Spontaneous
  Country: CN (occurrence: CN)
  Receive Date: 20250923
  Receipt Date: 20250923
  Transmission Date: 20251021
  Serious: Yes (Life-Threatening)
  Sender: BAYER HEALTHCARE PHARMACEUTICALS INC.
  Company Number: CN-BAYER-2025A125154

PATIENT
  Age: 50 Year
  Sex: Female
  Weight: 55.2 kg

DRUGS (2)
  1. ULTRAVIST [Suspect]
     Active Substance: IOPROMIDE
     Indication: Angiogram
     Route: 042
     Dates: start: 20250911, end: 20250911
  2. ULTRAVIST [Suspect]
     Active Substance: IOPROMIDE
     Indication: Abdominal pain

REACTIONS (6)
  - Anaphylactic shock [Recovered/Resolved]
  - Loss of consciousness [Recovered/Resolved]
  - Unresponsive to stimuli [Recovered/Resolved]
  - Blood pressure immeasurable [Recovered/Resolved]
  - Cardiac arrest [Recovered/Resolved]
  - Blood glucose increased [None]

NARRATIVE: CASE EVENT DATE: 20250911
